FAERS Safety Report 9269131 (Version 1)
Quarter: 2013Q2

REPORT INFORMATION
  Report Type: Spontaneous
  Country: JP (occurrence: None)
  Receive Date: 20130430
  Receipt Date: 20130430
  Transmission Date: 20140414
  Serious: Yes (Death, Hospitalization, Other)
  Sender: FDA-Public Use
  Company Number: ADR-2013-00731

PATIENT
  Age: 53 Year
  Sex: Male

DRUGS (1)
  1. GABALON INTRATHECAL [Suspect]

REACTIONS (6)
  - Pneumonia aspiration [None]
  - Blood pressure decreased [None]
  - Apnoea [None]
  - Shock [None]
  - Respiratory failure [None]
  - Pneumonia [None]
